FAERS Safety Report 5901503-0 (Version None)
Quarter: 2008Q3

REPORT INFORMATION
  Report Type: 
  Country: None (occurrence: None)
  Receive Date: 20080926
  Receipt Date: 20080926
  Transmission Date: 20090109
  Serious: Yes (Hospitalization)
  Sender: FDA-Public Use
  Company Number: None

PATIENT
  Age: 54 Year
  Sex: Female

DRUGS (6)
  1. BONIVA [Suspect]
     Indication: OSTEOPOROSIS
  2. PROTONIX [Concomitant]
  3. XANAX [Concomitant]
  4. CARAFATE ELIXIR [Concomitant]
  5. LIDOCAINE HCL VISCOUS [Concomitant]
  6. VICODIN EXTRA STRENGTH [Concomitant]

REACTIONS (2)
  - EROSIVE OESOPHAGITIS [None]
  - OESOPHAGITIS HAEMORRHAGIC [None]
